FAERS Safety Report 13869147 (Version 3)
Quarter: 2017Q4

REPORT INFORMATION
  Report Type: Spontaneous
  Country: US (occurrence: US)
  Receive Date: 20170815
  Receipt Date: 20171226
  Transmission Date: 20180320
  Serious: Yes (Hospitalization)
  Sender: FDA-Public Use
  Company Number: US-ELI_LILLY_AND_COMPANY-US201708004802

PATIENT
  Age: 54 Year
  Sex: Male

DRUGS (7)
  1. COENZYME Q10 [Concomitant]
     Active Substance: UBIDECARENONE
     Dosage: UNK, UNKNOWN
     Route: 065
     Dates: start: 2015
  2. ASPIRIN SANDOZ [Concomitant]
     Indication: THROMBOSIS
     Dosage: UNK, UNKNOWN
     Route: 065
     Dates: start: 2015
  3. ATORVASTATIN [Concomitant]
     Active Substance: ATORVASTATIN
     Indication: BLOOD CHOLESTEROL INCREASED
     Dosage: UNK UNK, UNKNOWN
     Route: 065
     Dates: start: 2015
  4. ANDRODERM [Suspect]
     Active Substance: TESTOSTERONE
     Indication: HORMONE REPLACEMENT THERAPY
     Dosage: UNK UNK, DAILY
     Route: 065
     Dates: start: 20131118, end: 20131223
  5. AXIRON [Suspect]
     Active Substance: TESTOSTERONE
     Indication: HORMONE REPLACEMENT THERAPY
     Dosage: UNK UNK, DAILY
     Route: 065
     Dates: start: 20131223, end: 20150810
  6. ZETIA [Concomitant]
     Active Substance: EZETIMIBE
     Indication: BLOOD CHOLESTEROL INCREASED
     Dosage: UNK, UNKNOWN
     Route: 065
     Dates: start: 2015
  7. CLOPIDOGREL [Concomitant]
     Active Substance: CLOPIDOGREL BISULFATE
     Indication: THROMBOSIS
     Dosage: UNK, UNKNOWN
     Route: 065
     Dates: start: 2015

REACTIONS (1)
  - Acute myocardial infarction [Recovered/Resolved]

NARRATIVE: CASE EVENT DATE: 20150810
